FAERS Safety Report 15333910 (Version 1)
Quarter: 2018Q3

REPORT INFORMATION
  Report Type: Spontaneous
  Country: US (occurrence: US)
  Receive Date: 20180825
  Receipt Date: 20180825
  Transmission Date: 20181010
  Serious: Yes (Life-Threatening, Other)
  Sender: FDA-Public Use
  Company Number: None

PATIENT
  Age: 19 Year
  Sex: Male
  Weight: 114.75 kg

DRUGS (3)
  1. DULOXETINE 60 MG DR CAP?P [Suspect]
     Active Substance: DULOXETINE
     Indication: OBSESSIVE-COMPULSIVE DISORDER
     Dosage: ?          QUANTITY:1 CAPSULE(S); AAT BED TIME ORAL?
     Route: 048
     Dates: start: 20180601, end: 20180726
  2. DULOXETINE 60 MG DR CAP?P [Suspect]
     Active Substance: DULOXETINE
     Indication: DEPRESSION
     Dosage: ?          QUANTITY:1 CAPSULE(S); AAT BED TIME ORAL?
     Route: 048
     Dates: start: 20180601, end: 20180726
  3. DULOXETINE 60 MG DR CAP?P [Suspect]
     Active Substance: DULOXETINE
     Indication: ANXIETY
     Dosage: ?          QUANTITY:1 CAPSULE(S); AAT BED TIME ORAL?
     Route: 048
     Dates: start: 20180601, end: 20180726

REACTIONS (12)
  - Mood swings [None]
  - Withdrawal syndrome [None]
  - Suicidal ideation [None]
  - Temperature intolerance [None]
  - Nightmare [None]
  - Pruritus [None]
  - Formication [None]
  - Anger [None]
  - Confusional state [None]
  - Paranoia [None]
  - Paraesthesia [None]
  - Dizziness [None]

NARRATIVE: CASE EVENT DATE: 20180621
